FAERS Safety Report 5693623-3 (Version None)
Quarter: 2008Q2

REPORT INFORMATION
  Report Type: 
  Country: None (occurrence: None)
  Receive Date: 20080403
  Receipt Date: 20080327
  Transmission Date: 20081010
  Serious: Yes (Death, Hospitalization)
  Sender: FDA-Public Use
  Company Number: US-GILEAD-2008-0015611

PATIENT
  Sex: Female
  Weight: 122.58 kg

DRUGS (9)
  1. LETAIRIS [Suspect]
     Indication: PULMONARY HYPERTENSION
     Dates: start: 20071201, end: 20080101
  2. ALBUTEROL [Concomitant]
     Route: 055
  3. AMIODARONE HCL [Concomitant]
     Route: 048
  4. ZEBETA [Concomitant]
     Route: 048
  5. BUMEX [Concomitant]
     Route: 048
  6. COLCHICINE [Concomitant]
     Route: 048
  7. DIGOXIN [Concomitant]
     Route: 048
  8. ADVAIR HFA [Concomitant]
     Dosage: 500MCG FLUTICASONE PROPIONATE/50MCG SALMETEROL
     Route: 055
  9. INSULIN [Concomitant]
     Dosage: SLIDING SCALE

REACTIONS (2)
  - HYPOXIA [None]
  - MULTI-ORGAN FAILURE [None]
